FAERS Safety Report 24234500 (Version 3)
Quarter: 2024Q3

REPORT INFORMATION
  Report Type: Spontaneous
  Country: US (occurrence: US)
  Receive Date: 20240821
  Receipt Date: 20240930
  Transmission Date: 20241017
  Serious: No
  Sender: JOHNSON AND JOHNSON
  Company Number: US-JNJFOC-20240830370

PATIENT
  Age: 26 Year
  Sex: Female

DRUGS (2)
  1. STELARA [Suspect]
     Active Substance: USTEKINUMAB
     Indication: Crohn^s disease
     Dosage: 90MG/ML.
     Route: 058
  2. STELARA [Suspect]
     Active Substance: USTEKINUMAB

REACTIONS (5)
  - Product dose omission issue [Unknown]
  - Product leakage [Unknown]
  - Off label use [Unknown]
  - Wrong technique in product usage process [Unknown]
  - Device issue [Unknown]

NARRATIVE: CASE EVENT DATE: 20240809
